FAERS Safety Report 25490938 (Version 3)
Quarter: 2025Q4

REPORT INFORMATION
  Report Type: Spontaneous
  Country: US (occurrence: US)
  Receive Date: 20250629
  Receipt Date: 20251128
  Transmission Date: 20260118
  Serious: No
  Sender: SANOFI AVENTIS
  Company Number: US-SA-2025SA181312

PATIENT
  Sex: Male
  Weight: 139.7 kg

DRUGS (1)
  1. DUPIXENT [Suspect]
     Active Substance: DUPILUMAB
     Indication: Dermatitis atopic
     Dosage: 300 MG, QOW
     Route: 058

REACTIONS (6)
  - Upper respiratory tract infection [Unknown]
  - Cough [Unknown]
  - Eczema [Unknown]
  - Injection site pain [Unknown]
  - Injection site swelling [Unknown]
  - Needle issue [Unknown]
